FAERS Safety Report 5576891-8 (Version None)
Quarter: 2007Q4

REPORT INFORMATION
  Report Type: 
  Country: None (occurrence: None)
  Receive Date: 20071228
  Receipt Date: 20071217
  Transmission Date: 20080405
  Serious: Yes (Hospitalization)
  Sender: FDA-Public Use
  Company Number: US-RANBAXY-2007RR-11772

PATIENT

DRUGS (1)
  1. VERAPAMIL [Suspect]

REACTIONS (3)
  - HYPOTENSION [None]
  - MULTI-ORGAN FAILURE [None]
  - SHOCK [None]
